FAERS Safety Report 12507357 (Version 1)
Quarter: 2016Q2

REPORT INFORMATION
  Report Type: Spontaneous
  Country: US (occurrence: None)
  Receive Date: 20160628
  Receipt Date: 20160628
  Transmission Date: 20160815
  Serious: Yes (Disabling)
  Sender: FDA-Public Use
  Company Number: None

PATIENT
  Age: 56 Year
  Sex: Male
  Weight: 65.77 kg

DRUGS (15)
  1. ASA [Concomitant]
     Active Substance: ASPIRIN
  2. DILAUDID [Concomitant]
     Active Substance: HYDROMORPHONE HYDROCHLORIDE
  3. MORPHINE- PUMP [Concomitant]
  4. SAKUBE EYE DROPS [Concomitant]
  5. BACLOFEN- PUMP [Concomitant]
  6. NITROSTAT [Concomitant]
     Active Substance: NITROGLYCERIN
  7. LIPITOR [Concomitant]
     Active Substance: ATORVASTATIN CALCIUM
  8. NORCO [Concomitant]
     Active Substance: ACETAMINOPHEN\HYDROCODONE BITARTRATE
  9. STOOL SOFTENER [Concomitant]
     Active Substance: DOCUSATE CALCIUM
  10. FENTANYL CITRATE LOZENGE 200 MCG, 200 MEQ PAR PHARMACEUTICAL COMPANY, INC [Suspect]
     Active Substance: FENTANYL CITRATE
     Indication: COMPLEX REGIONAL PAIN SYNDROME
     Dosage: 30 LOZENGES
     Route: 002
     Dates: start: 20160602, end: 20160627
  11. SUDAFED [Concomitant]
     Active Substance: PSEUDOEPHEDRINE HYDROCHLORIDE
  12. IBUPROFEN. [Concomitant]
     Active Substance: IBUPROFEN
  13. LEVOTHYROXINE. [Concomitant]
     Active Substance: LEVOTHYROXINE
  14. SENNAKOT [Concomitant]
  15. FENTANYL CITRATE LOZENGE 200 MCG, 200 MEQ PAR PHARMACEUTICAL COMPANY, INC [Suspect]
     Active Substance: FENTANYL CITRATE
     Indication: BREAKTHROUGH PAIN
     Dosage: 30 LOZENGES
     Route: 002
     Dates: start: 20160602, end: 20160627

REACTIONS (6)
  - Drug withdrawal syndrome [None]
  - Incorrect dose administered [None]
  - Product solubility abnormal [None]
  - Incorrect route of drug administration [None]
  - Pain [None]
  - Product substitution issue [None]

NARRATIVE: CASE EVENT DATE: 20160602
